FAERS Safety Report 17252424 (Version 3)
Quarter: 2020Q3

REPORT INFORMATION
  Report Type: Spontaneous
  Country: US (occurrence: US)
  Receive Date: 20200109
  Receipt Date: 20200924
  Transmission Date: 20201102
  Serious: No
  Sender: FDA-Public Use
  Company Number: US-PFIZER INC-2019555255

PATIENT
  Age: 74 Year
  Sex: Male

DRUGS (1)
  1. NICOTROL [Suspect]
     Active Substance: NICOTINE
     Dosage: 1 PUFF INHALE 5 TIMES DAILY
     Route: 055

REACTIONS (1)
  - Hypoacusis [Unknown]
